FAERS Safety Report 25606854 (Version 1)
Quarter: 2025Q3

REPORT INFORMATION
  Report Type: Spontaneous
  Country: EU (occurrence: EU)
  Receive Date: 20250725
  Receipt Date: 20250725
  Transmission Date: 20251021
  Serious: Yes (Hospitalization)
  Sender: GENMAB
  Company Number: None

PATIENT
  Age: 60 Year
  Sex: Female

DRUGS (1)
  1. EPCORITAMAB [Suspect]
     Active Substance: EPCORITAMAB
     Indication: Diffuse large B-cell lymphoma
     Route: 058
     Dates: start: 2023

REACTIONS (2)
  - Neurotoxicity [Recovered/Resolved]
  - Cytokine release syndrome [Recovered/Resolved]
